FAERS Safety Report 5844540-7 (Version None)
Quarter: 2008Q3

REPORT INFORMATION
  Report Type: 
  Country: None (occurrence: None)
  Receive Date: 20080814
  Receipt Date: 20080811
  Transmission Date: 20090109
  Serious: Yes (Hospitalization)
  Sender: FDA-Public Use
  Company Number: PHHO2002IT06506

PATIENT
  Sex: Female

DRUGS (1)
  1. EXELON EXELON+CAP [Suspect]
     Indication: DEMENTIA ALZHEIMER'S TYPE
     Dosage: UNSPECIFIED
     Route: 048
     Dates: start: 20020214

REACTIONS (2)
  - ANOREXIA [None]
  - WEIGHT DECREASED [None]
